FAERS Safety Report 18584142 (Version 1)
Quarter: 2020Q4

REPORT INFORMATION
  Report Type: Spontaneous
  Country: US (occurrence: US)
  Receive Date: 20201207
  Receipt Date: 20201207
  Transmission Date: 20210114
  Serious: Yes (Other)
  Sender: FDA-Public Use
  Company Number: US-GLAXOSMITHKLINE-US2020237495

PATIENT
  Age: 57 Year
  Sex: Female

DRUGS (1)
  1. EXCEDRIN MIGRAINE [Suspect]
     Active Substance: ACETAMINOPHEN\ASPIRIN\CAFFEINE
     Indication: MIGRAINE
     Dosage: 2 DF, U (TABLETS)
     Dates: start: 20201130, end: 20201130

REACTIONS (4)
  - Oropharyngeal discomfort [Recovered/Resolved]
  - Illness [Recovered/Resolved]
  - Foreign body in throat [Unknown]
  - Product complaint [Unknown]

NARRATIVE: CASE EVENT DATE: 20201130
